FAERS Safety Report 6989228-4 (Version None)
Quarter: 2010Q3

REPORT INFORMATION
  Report Type: 
  Country: None (occurrence: None)
  Receive Date: 20100916
  Receipt Date: 20091120
  Transmission Date: 20110219
  Serious: Yes (Other)
  Sender: FDA-Public Use
  Company Number: CO-PFIZER INC-2009288677

PATIENT
  Sex: Female

DRUGS (4)
  1. LYRICA [Suspect]
     Indication: NEURALGIA
     Dosage: 75 MG, 2X/DAY
     Route: 048
     Dates: start: 20090901
  2. IBUPROFEN [Concomitant]
     Indication: PAIN
  3. NAPROXEN [Concomitant]
     Indication: PAIN
     Dosage: 250 MG, 2X/DAY
  4. TRIMEBUTINE MALEATE [Concomitant]
     Indication: IRRITABLE BOWEL SYNDROME

REACTIONS (4)
  - DIZZINESS [None]
  - HYPOXIA [None]
  - RESPIRATORY ARREST [None]
  - SOMNOLENCE [None]
